FAERS Safety Report 16127834 (Version 1)
Quarter: 2019Q1

REPORT INFORMATION
  Report Type: Report from Study
  Country: ES (occurrence: ES)
  Receive Date: 20190328
  Receipt Date: 20190328
  Transmission Date: 20190418
  Serious: Yes (Hospitalization)
  Sender: FDA-Public Use
  Company Number: ES-TEVA-2019-ES-1028948

PATIENT
  Age: 66 Year
  Sex: Male

DRUGS (6)
  1. PIPERACILINA + TAZOBACTAM [Suspect]
     Active Substance: PIPERACILLIN SODIUM\TAZOBACTAM SODIUM
     Indication: VASCULAR DEVICE INFECTION
     Route: 042
     Dates: start: 20181010, end: 20181022
  2. OMEPRAZOL (2141A) [Concomitant]
     Active Substance: OMEPRAZOLE
     Indication: PROPHYLAXIS AGAINST GASTROINTESTINAL ULCER
     Dosage: 40 MILLIGRAM DAILY;
     Route: 048
  3. RIFAXIMINA (2662A) [Suspect]
     Active Substance: RIFAXIMIN
     Indication: ANTIBIOTIC PROPHYLAXIS
     Route: 048
     Dates: start: 20180808
  4. MOXIFLOXACINO (1119A) [Suspect]
     Active Substance: MOXIFLOXACIN HYDROCHLORIDE
     Indication: VASCULAR DEVICE INFECTION
     Route: 048
     Dates: start: 20181023, end: 20181116
  5. MICOFENOLATO DE MOFETILO (7330LM) [Concomitant]
     Active Substance: MYCOPHENOLATE MOFETIL
     Indication: PROPHYLAXIS AGAINST TRANSPLANT REJECTION
     Route: 048
     Dates: start: 200207
  6. PREDNISONA (886A) [Concomitant]
     Active Substance: PREDNISONE
     Indication: PROPHYLAXIS AGAINST TRANSPLANT REJECTION
     Route: 048
     Dates: start: 200207

REACTIONS (2)
  - Pseudomembranous colitis [Recovered/Resolved]
  - Clostridium difficile colitis [Recovered/Resolved]

NARRATIVE: CASE EVENT DATE: 20181112
